FAERS Safety Report 7018165-4 (Version None)
Quarter: 2010Q3

REPORT INFORMATION
  Report Type: 
  Country: None (occurrence: None)
  Receive Date: 20100928
  Receipt Date: 20100920
  Transmission Date: 20110219
  Serious: Yes (Hospitalization)
  Sender: FDA-Public Use
  Company Number: US-ROCHE-721936

PATIENT
  Age: 55 Year
  Sex: Male
  Weight: 110 kg

DRUGS (8)
  1. MYCOPHENOLATE MOFETIL [Suspect]
     Indication: IMMUNOSUPPRESSION
     Route: 048
     Dates: start: 20080912, end: 20100809
  2. MYCOPHENOLATE MOFETIL [Suspect]
     Route: 048
  3. CYCLOSPORINE [Suspect]
     Route: 048
     Dates: start: 20080912, end: 20100816
  4. ESOMEPRAZOLE [Concomitant]
     Dates: start: 20080913
  5. NORVASC [Concomitant]
     Indication: HYPERTENSION
     Dates: start: 20080912
  6. METOPROLOL TARTRATE [Concomitant]
     Indication: HYPERTENSION
     Dates: start: 20080914
  7. BACTRIM [Concomitant]
     Indication: PROPHYLAXIS
     Dates: start: 20080913
  8. ASPIRIN [Concomitant]
     Indication: PROPHYLAXIS
     Dates: start: 20090815

REACTIONS (3)
  - BLOOD CREATININE INCREASED [None]
  - HERPES ZOSTER [None]
  - KIDNEY TRANSPLANT REJECTION [None]
